FAERS Safety Report 7457151-7 (Version None)
Quarter: 2011Q2

REPORT INFORMATION
  Report Type: 
  Country: None (occurrence: None)
  Receive Date: 20110504
  Receipt Date: 20110422
  Transmission Date: 20111010
  Serious: Yes (Other)
  Sender: FDA-Public Use
  Company Number: IT-JNJFOC-20110411560

PATIENT
  Age: 84 Year
  Sex: Female

DRUGS (5)
  1. METOPROLOL TARTRATE [Concomitant]
     Route: 065
  2. WARFARIN SODIUM [Concomitant]
     Route: 048
  3. TAVANIC [Suspect]
     Indication: RESPIRATORY TRACT INFECTION
     Route: 048
  4. FUROSEMIDE [Concomitant]
     Route: 048
  5. OMEPRAZOLE [Concomitant]
     Route: 048

REACTIONS (2)
  - ERYTHEMA [None]
  - BRONCHOSPASM [None]
